FAERS Safety Report 4536982-7 (Version None)
Quarter: 2004Q4

REPORT INFORMATION
  Report Type: 
  Country: None (occurrence: None)
  Receive Date: 20041220
  Receipt Date: 20041216
  Transmission Date: 20050328
  Serious: Yes (Other)
  Sender: FDA-Public Use
  Company Number: HQWYE098016SEP04

PATIENT
  Sex: Female

DRUGS (1)
  1. PREMARIN [Suspect]
     Indication: OESTROGEN REPLACEMENT THERAPY
     Dates: start: 19970101

REACTIONS (4)
  - ASTHMA [None]
  - GALLBLADDER DISORDER [None]
  - PAIN IN EXTREMITY [None]
  - THYROID DISORDER [None]
